FAERS Safety Report 6216723-8 (Version None)
Quarter: 2009Q2

REPORT INFORMATION
  Report Type: 
  Country: None (occurrence: None)
  Receive Date: 20090603
  Receipt Date: 20090603
  Transmission Date: 20091009
  Serious: Yes (Death)
  Sender: FDA-Public Use
  Company Number: None

PATIENT
  Age: 32 Year
  Sex: Female
  Weight: 41 kg

DRUGS (8)
  1. TRUVADA [Suspect]
     Indication: HIV INFECTION
     Dosage: 200/300 MG QD ORAL
     Route: 048
     Dates: start: 20090112, end: 20090310
  2. EFAVIRENZ [Suspect]
     Indication: HIV INFECTION
     Dosage: 600 MG QD ORAL
     Route: 048
     Dates: start: 20090112, end: 20090310
  3. ISONIAZID [Concomitant]
  4. RIFAMPICIN [Concomitant]
  5. FLUCONAZOLE [Concomitant]
  6. INDOMETHACIN [Concomitant]
  7. DEPO-PROVERA [Concomitant]
  8. RANFERON [Concomitant]

REACTIONS (16)
  - ANAEMIA [None]
  - ARTHRITIS [None]
  - ASPARTATE AMINOTRANSFERASE INCREASED [None]
  - BLOOD ALBUMIN DECREASED [None]
  - BLOOD ALKALINE PHOSPHATASE INCREASED [None]
  - BLOOD BILIRUBIN INCREASED [None]
  - BLOOD PHOSPHORUS INCREASED [None]
  - BLOOD PRESSURE SYSTOLIC DECREASED [None]
  - CARBON DIOXIDE DECREASED [None]
  - HYPERKALAEMIA [None]
  - JAUNDICE [None]
  - OESOPHAGEAL CANDIDIASIS [None]
  - RED BLOOD CELL COUNT DECREASED [None]
  - RENAL FAILURE [None]
  - TREATMENT NONCOMPLIANCE [None]
  - WHITE BLOOD CELL COUNT INCREASED [None]
